FAERS Safety Report 4710670-6 (Version None)
Quarter: 2005Q3

REPORT INFORMATION
  Report Type: 
  Country: None (occurrence: None)
  Receive Date: 20050707
  Receipt Date: 20050621
  Transmission Date: 20060218
  Serious: Yes (Other)
  Sender: FDA-Public Use
  Company Number: GBS050617693

PATIENT
  Age: 33 Year
  Sex: Male
  Weight: 70 kg

DRUGS (4)
  1. OLANZAPINE [Suspect]
     Indication: BIPOLAR DISORDER
     Dosage: 15 MG AT BEDTIME
     Dates: start: 20050523
  2. AMITRIPTYLINE HCL [Concomitant]
  3. LITHIUM [Concomitant]
  4. CARBAMAZEPINE [Concomitant]

REACTIONS (1)
  - NICOTINE DEPENDENCE [None]
